FAERS Safety Report 13343072 (Version 2)
Quarter: 2017Q2

REPORT INFORMATION
  Report Type: Spontaneous
  Country: US (occurrence: US)
  Receive Date: 20170316
  Receipt Date: 20170601
  Transmission Date: 20170830
  Serious: Yes (Other)
  Sender: FDA-Public Use
  Company Number: US-ASTRAZENECA-2017SE26624

PATIENT
  Age: 20827 Day
  Sex: Male
  Weight: 121.6 kg

DRUGS (15)
  1. MINOXIDIL. [Concomitant]
     Active Substance: MINOXIDIL
     Dosage: 2.5MG UNKNOWN
     Dates: start: 20060526
  2. TYLENOL [Concomitant]
     Active Substance: ACETAMINOPHEN
     Dosage: 325 MG TABLET 1 TABLET AS NEEDED EVERY 6 HRS
  3. NEXIUM [Suspect]
     Active Substance: ESOMEPRAZOLE MAGNESIUM
     Route: 048
     Dates: start: 20060512
  4. PAROXETINE HCL [Concomitant]
     Active Substance: PAROXETINE HYDROCHLORIDE
     Dosage: 20.0MG UNKNOWN
     Dates: start: 20070531
  5. NEXIUM [Suspect]
     Active Substance: ESOMEPRAZOLE MAGNESIUM
     Dosage: 40.0MG UNKNOWN
     Route: 048
     Dates: start: 20060512
  6. METFORMIN HYDROCHLORIDE. [Concomitant]
     Active Substance: METFORMIN HYDROCHLORIDE
     Dosage: 500.0MG UNKNOWN
     Dates: start: 20070507
  7. KLOR-CON [Concomitant]
     Active Substance: POTASSIUM CHLORIDE
     Dosage: 20 MEQ TABLET EXTENDED RELEASE 2 TABLETS TWICE A DAY
  8. CARVEDILOL. [Concomitant]
     Active Substance: CARVEDILOL
     Dosage: 25.0MG UNKNOWN
     Dates: start: 20080829
  9. QUINAPRIL. [Concomitant]
     Active Substance: QUINAPRIL
  10. HYDRALAZINE HCL [Concomitant]
     Active Substance: HYDRALAZINE HYDROCHLORIDE
  11. NIFEDIPINE. [Concomitant]
     Active Substance: NIFEDIPINE
  12. ERGOCALCIFEROL. [Concomitant]
     Active Substance: ERGOCALCIFEROL
     Dosage: 50,000 UNITS CAPSULE 1 CAPSULE ONCE A MONTH
  13. EPLERENONE. [Concomitant]
     Active Substance: EPLERENONE
  14. NEXIUM [Suspect]
     Active Substance: ESOMEPRAZOLE MAGNESIUM
     Dosage: 40.0MG UNKNOWN
     Route: 048
     Dates: start: 20140603
  15. SIMVASTATIN. [Concomitant]
     Active Substance: SIMVASTATIN
     Dosage: 40.0MG UNKNOWN
     Dates: start: 20070518

REACTIONS (2)
  - Acute kidney injury [Unknown]
  - Chronic kidney disease [Unknown]

NARRATIVE: CASE EVENT DATE: 20140603
